FAERS Safety Report 20090084 (Version 1)
Quarter: 2021Q4

REPORT INFORMATION
  Report Type: Spontaneous
  Country: US (occurrence: US)
  Receive Date: 20211119
  Receipt Date: 20211119
  Transmission Date: 20220304
  Serious: No
  Sender: FDA-Public Use
  Company Number: US-PFIZER INC-202101402846

PATIENT
  Age: 58 Year
  Sex: Male

DRUGS (4)
  1. ENBREL [Suspect]
     Active Substance: ETANERCEPT
     Indication: Arthralgia
     Dosage: UNK
     Route: 065
  2. PREDNISONE [Concomitant]
     Active Substance: PREDNISONE
     Dosage: 1 MG/KG
  3. PREDNISONE [Concomitant]
     Active Substance: PREDNISONE
     Dosage: UNK UNK, DAILY (BELOW 20 MG/DAY)
  4. PREDNISONE [Concomitant]
     Active Substance: PREDNISONE
     Dosage: 12.5 MG

REACTIONS (1)
  - Drug ineffective [Unknown]
